FAERS Safety Report 4385208-6 (Version None)
Quarter: 2004Q2

REPORT INFORMATION
  Report Type: 
  Country: None (occurrence: None)
  Receive Date: 20040625
  Receipt Date: 20040616
  Transmission Date: 20050107
  Serious: Yes (Death, Other)
  Sender: FDA-Public Use
  Company Number: US-MERCK-0406USA01757

PATIENT
  Age: 14 Year
  Sex: Female

DRUGS (9)
  1. ALDESLEUKIN [Concomitant]
     Indication: METASTATIC MALIGNANT MELANOMA
     Route: 065
     Dates: start: 20010101
  2. CELECOXIB [Concomitant]
     Route: 048
     Dates: start: 20011119
  3. CISPLATIN [Concomitant]
     Indication: METASTATIC MALIGNANT MELANOMA
     Route: 065
     Dates: start: 20010101
  4. DACARBAZINE [Concomitant]
     Indication: METASTATIC MALIGNANT MELANOMA
     Route: 065
     Dates: start: 20010101
  5. DECADRON [Suspect]
     Indication: BRAIN NEOPLASM
     Route: 048
     Dates: start: 20010101
  6. DECADRON [Suspect]
     Route: 048
     Dates: start: 20010615
  7. DECADRON [Suspect]
     Route: 048
     Dates: start: 20010101, end: 20011102
  8. INTERFERON ALFA [Concomitant]
     Indication: METASTATIC MALIGNANT MELANOMA
     Route: 065
     Dates: start: 20010101
  9. VINBLASTINE SULFATE [Concomitant]
     Indication: METASTATIC MALIGNANT MELANOMA
     Route: 065
     Dates: start: 20010101

REACTIONS (6)
  - BRAIN NEOPLASM [None]
  - BRAIN OEDEMA [None]
  - CUSHINGOID [None]
  - DEATH [None]
  - MYOPATHY STEROID [None]
  - NECROSIS [None]
